FAERS Safety Report 21250177 (Version 1)
Quarter: 2022Q3

REPORT INFORMATION
  Report Type: Spontaneous
  Country: US (occurrence: None)
  Receive Date: 20220823
  Receipt Date: 20220823
  Transmission Date: 20221027
  Serious: No
  Sender: FDA-Public Use
  Company Number: None

PATIENT
  Sex: Male

DRUGS (1)
  1. TALTZ [Suspect]
     Active Substance: IXEKIZUMAB
     Indication: Psoriatic arthropathy
     Dosage: INJECT 1 SYRINGE (80 MG) UNDER THE SKIN (SUBCUTANEOUS INJECTION) EVERY 4 WEEKS??
     Route: 058
     Dates: start: 20210811

REACTIONS (2)
  - Therapy interrupted [None]
  - Ear infection [None]
